FAERS Safety Report 19153516 (Version 1)
Quarter: 2021Q2

REPORT INFORMATION
  Report Type: Spontaneous
  Country: US (occurrence: US)
  Receive Date: 20210419
  Receipt Date: 20210419
  Transmission Date: 20210717
  Serious: No
  Sender: FDA-Public Use
  Company Number: US-KVK-TECH, INC-20210100004

PATIENT
  Age: 51 Year
  Sex: Female
  Weight: 96.15 kg

DRUGS (4)
  1. IBUPROFEN. [Concomitant]
     Active Substance: IBUPROFEN
  2. CLEARTEEN [Concomitant]
  3. ZOLTAN [Concomitant]
  4. PHENTERMINE HYDROCHLORIDE TABLETS, USP [Suspect]
     Active Substance: PHENTERMINE HYDROCHLORIDE
     Indication: WEIGHT DECREASED
     Dosage: 37.5 MILLIGRAM, QD
     Route: 048
     Dates: start: 20200909, end: 20210104

REACTIONS (9)
  - Headache [Recovered/Resolved]
  - Emotional distress [Recovered/Resolved]
  - Nervousness [Recovered/Resolved]
  - Drug ineffective [Unknown]
  - Nausea [Recovered/Resolved]
  - Dry mouth [Recovered/Resolved]
  - Taste disorder [Recovered/Resolved]
  - Insomnia [Recovered/Resolved]
  - Fatigue [Recovered/Resolved]

NARRATIVE: CASE EVENT DATE: 20200909
